FAERS Safety Report 8828130 (Version 1)
Quarter: 2012Q4

REPORT INFORMATION
  Report Type: 
  Country: US (occurrence: US)
  Receive Date: 20121005
  Receipt Date: 20121005
  Transmission Date: 20130627
  Serious: No
  Sender: FDA-Public Use
  Company Number: US-PFIZER INC-2012244949

PATIENT
  Age: 44 Year
  Sex: Female
  Weight: 58.96 kg

DRUGS (6)
  1. CHANTIX [Suspect]
     Indication: SMOKING CESSATION THERAPY
     Dosage: UNK
     Route: 048
     Dates: start: 201209, end: 20120928
  2. PROZAC [Concomitant]
     Indication: BIPOLAR DISORDER
     Dosage: UNK
  3. LOPRESSOR [Concomitant]
     Dosage: 5 mg, UNK
  4. CELEBREX [Concomitant]
     Indication: ARTHRITIS
     Dosage: 200 mg, daily
     Route: 048
  5. SOMA [Concomitant]
     Indication: MUSCLE RELAXANT THERAPY
     Dosage: UNK
     Route: 048
  6. ZYPREXA [Concomitant]
     Indication: BIPOLAR DISORDER
     Dosage: 5 mg, UNK

REACTIONS (1)
  - Nausea [Recovered/Resolved]
